FAERS Safety Report 9288574 (Version 1)
Quarter: 2013Q2

REPORT INFORMATION
  Report Type: Spontaneous
  Country: US (occurrence: None)
  Receive Date: 20130513
  Receipt Date: 20130513
  Transmission Date: 20140414
  Serious: No
  Sender: FDA-Public Use
  Company Number: None

PATIENT
  Age: 39 None
  Sex: Male

DRUGS (1)
  1. ENBREL [Suspect]
     Indication: PSORIASIS
     Dosage: SQ
     Dates: start: 20130422

REACTIONS (4)
  - Asthenia [None]
  - Dizziness [None]
  - Balance disorder [None]
  - Gastric disorder [None]
